FAERS Safety Report 5639381-X (Version None)
Quarter: 2008Q1

REPORT INFORMATION
  Report Type: 
  Country: None (occurrence: None)
  Receive Date: 20080226
  Receipt Date: 20080214
  Transmission Date: 20080703
  Serious: Yes (Other)
  Sender: FDA-Public Use
  Company Number: US-PFIZER INC-2007108816

PATIENT
  Sex: Female
  Weight: 95.5 kg

DRUGS (15)
  1. DILANTIN [Suspect]
     Indication: CONVULSION
  2. NEURONTIN [Concomitant]
     Indication: CONVULSION
  3. KEPPRA [Concomitant]
  4. VALIUM [Concomitant]
     Indication: CONVULSION
  5. ESTROGENS ESTERFIED/METHYLTESTOSTERONE [Concomitant]
  6. VITAMIN B-12 [Concomitant]
  7. SYNTHROID [Concomitant]
  8. DARVOCET-N 100 [Concomitant]
  9. XOPENEX [Concomitant]
  10. VICODIN ES [Concomitant]
  11. DURAGESIC-100 [Concomitant]
  12. LASIX [Concomitant]
  13. DRISDOL [Concomitant]
  14. PRILOSEC [Concomitant]
  15. K-TAB [Concomitant]

REACTIONS (8)
  - ANTICONVULSANT DRUG LEVEL DECREASED [None]
  - ASTHENIA [None]
  - DYSPNOEA [None]
  - FATIGUE [None]
  - HYPERSOMNIA [None]
  - HYPOGLYCAEMIA [None]
  - PRESYNCOPE [None]
  - WEIGHT INCREASED [None]
